FAERS Safety Report 16872122 (Version 1)
Quarter: 2019Q4

REPORT INFORMATION
  Report Type: Spontaneous
  Country: CA (occurrence: CA)
  Receive Date: 20191001
  Receipt Date: 20191001
  Transmission Date: 20200122
  Serious: Yes (Other)
  Sender: FDA-Public Use
  Company Number: CA-TEVA-2019-CA-1114560

PATIENT
  Age: 64 Year
  Sex: Male

DRUGS (10)
  1. ACETAMINOPHEN. [Interacting]
     Active Substance: ACETAMINOPHEN
     Indication: PELVIC PAIN
     Route: 065
  2. DEXAMETHASONE. [Suspect]
     Active Substance: DEXAMETHASONE
     Indication: PELVIC PAIN
     Route: 048
  3. DEXAMETHASONE. [Interacting]
     Active Substance: DEXAMETHASONE
     Indication: BACK PAIN
     Route: 048
  4. ACETAMINOPHEN. [Interacting]
     Active Substance: ACETAMINOPHEN
     Indication: BACK PAIN
     Route: 065
  5. METHADONE [Interacting]
     Active Substance: METHADONE HYDROCHLORIDE
     Indication: BACK PAIN
     Route: 065
  6. PREGABALIN. [Interacting]
     Active Substance: PREGABALIN
     Indication: PELVIC PAIN
     Route: 065
  7. METHADONE [Interacting]
     Active Substance: METHADONE HYDROCHLORIDE
     Indication: PELVIC PAIN
     Route: 048
  8. HYDROMORPHONE [Interacting]
     Active Substance: HYDROMORPHONE
     Indication: PELVIC PAIN
     Route: 037
  9. PREGABALIN. [Interacting]
     Active Substance: PREGABALIN
     Indication: BACK PAIN
     Route: 065
  10. HYDROMORPHONE [Interacting]
     Active Substance: HYDROMORPHONE
     Indication: BACK PAIN
     Route: 051

REACTIONS (4)
  - Drug ineffective [Recovered/Resolved]
  - Delirium [Recovered/Resolved]
  - Hallucination [Recovered/Resolved]
  - Drug interaction [Recovered/Resolved]
